FAERS Safety Report 7988075-4 (Version None)
Quarter: 2011Q4

REPORT INFORMATION
  Report Type: 
  Country: None (occurrence: None)
  Receive Date: 20111216
  Receipt Date: 20110531
  Transmission Date: 20120403
  Serious: Yes (Hospitalization)
  Sender: FDA-Public Use
  Company Number: US-BRISTOL-MYERS SQUIBB COMPANY-15796956

PATIENT
  Age: 30 Year
  Sex: Male

DRUGS (2)
  1. ABILIFY [Suspect]
  2. KLONOPIN [Concomitant]

REACTIONS (1)
  - AKATHISIA [None]
